FAERS Safety Report 5098932-7 (Version None)
Quarter: 2006Q3

REPORT INFORMATION
  Report Type: 
  Country: None (occurrence: None)
  Receive Date: 20060907
  Receipt Date: 20060829
  Transmission Date: 20061208
  Serious: Yes (Hospitalization)
  Sender: FDA-Public Use
  Company Number: US-AVENTIS-200617268US

PATIENT
  Sex: Female

DRUGS (3)
  1. LANTUS [Suspect]
     Dosage: DOSE: UNK
  2. STARLIX [Suspect]
     Dosage: DOSE: UNK
  3. AVANDIA [Suspect]
     Dosage: DOSE: UNK

REACTIONS (3)
  - ABSCESS [None]
  - BLOOD GLUCOSE INCREASED [None]
  - VOMITING [None]
